FAERS Safety Report 7795864-8 (Version None)
Quarter: 2011Q4

REPORT INFORMATION
  Report Type: 
  Country: None (occurrence: None)
  Receive Date: 20111004
  Receipt Date: 20110926
  Transmission Date: 20120403
  Serious: Yes (Hospitalization)
  Sender: FDA-Public Use
  Company Number: JP-B.I. PHARMACEUTICALS,INC./RIDGEFIELD-2010-DE-00634GD

PATIENT
  Age: 80 Year
  Sex: Female

DRUGS (6)
  1. VOLTAREN [Suspect]
     Route: 054
  2. ACETAMINOPHEN [Suspect]
     Indication: PYREXIA
     Dates: end: 20081101
  3. MICARDIS [Suspect]
     Dates: end: 20081101
  4. CEFDINIR [Suspect]
     Dates: end: 20081101
  5. DILTIAZEM HCL [Suspect]
     Dates: end: 20081101
  6. SUCRALFATE [Suspect]
     Dates: end: 20081101

REACTIONS (5)
  - ERYTHEMA MULTIFORME [None]
  - MALAISE [None]
  - PYREXIA [None]
  - ACUTE GENERALISED EXANTHEMATOUS PUSTULOSIS [None]
  - DERMATITIS EXFOLIATIVE [None]
